FAERS Safety Report 4812344-X (Version None)
Quarter: 2005Q4

REPORT INFORMATION
  Report Type: 
  Country: None (occurrence: None)
  Receive Date: 20051028
  Receipt Date: 20050114
  Transmission Date: 20060501
  Serious: No
  Sender: FDA-Public Use
  Company Number: US-GLAXOSMITHKLINE-A0540779A

PATIENT
  Age: 60 Year
  Sex: Female
  Weight: 67.7 kg

DRUGS (1)
  1. ADVAIR DISKUS 100/50 [Suspect]
     Indication: ASTHMA
     Route: 055
     Dates: start: 20050111

REACTIONS (2)
  - NASAL CONGESTION [None]
  - SINUS HEADACHE [None]
